FAERS Safety Report 17562752 (Version 3)
Quarter: 2020Q2

REPORT INFORMATION
  Report Type: Spontaneous
  Country: US (occurrence: US)
  Receive Date: 20200319
  Receipt Date: 20200611
  Transmission Date: 20200713
  Serious: Yes (Hospitalization)
  Sender: FDA-Public Use
  Company Number: US-ACTELION-A-NJ2020-203046

PATIENT
  Age: 3 Month
  Sex: Female

DRUGS (10)
  1. HYDROCHLOROTHIAZIDE. [Concomitant]
     Active Substance: HYDROCHLOROTHIAZIDE
     Indication: LUNG DISORDER
     Dosage: UNK
     Dates: start: 202002
  2. SILDENAFIL. [Concomitant]
     Active Substance: SILDENAFIL
     Indication: PULMONARY HYPERTENSION
     Dosage: UNK
  3. FAMOTIDINE. [Concomitant]
     Active Substance: FAMOTIDINE
  4. SIMETHICONE (DIMETHICONE) [Concomitant]
     Active Substance: DIMETHICONE
  5. HYDROCHLOROTHIAZIDE. [Concomitant]
     Active Substance: HYDROCHLOROTHIAZIDE
     Indication: PULMONARY HYPERTENSION
  6. TRACLEER [Suspect]
     Active Substance: BOSENTAN
     Indication: PULMONARY HYPERTENSION
     Dosage: 32 MG, BID
     Route: 048
     Dates: start: 20191202
  7. LASIX [Concomitant]
     Active Substance: FUROSEMIDE
     Indication: PULMONARY HYPERTENSION
  8. ERGOCALCIFEROL. [Concomitant]
     Active Substance: ERGOCALCIFEROL
  9. LASIX [Concomitant]
     Active Substance: FUROSEMIDE
     Indication: LUNG DISORDER
     Dosage: 15 NG, Q12HRS
     Dates: start: 201909
  10. LANSOPRAZOLE. [Concomitant]
     Active Substance: LANSOPRAZOLE

REACTIONS (5)
  - Patent ductus arteriosus repair [Unknown]
  - Oesophagogastric fundoplasty [Unknown]
  - Rehabilitation therapy [Unknown]
  - Gastrointestinal tube insertion [Unknown]
  - Intestinal malrotation repair [Unknown]

NARRATIVE: CASE EVENT DATE: 20200102
